FAERS Safety Report 9288766 (Version 1)
Quarter: 2013Q2

REPORT INFORMATION
  Report Type: Spontaneous
  Country: FR (occurrence: FR)
  Receive Date: 20130514
  Receipt Date: 20130514
  Transmission Date: 20140414
  Serious: Yes (Hospitalization, Disabling, Other)
  Sender: FDA-Public Use
  Company Number: FR-ABBOTT-13P-056-1086773-00

PATIENT
  Age: 50 Year
  Sex: Male

DRUGS (8)
  1. NORVIR [Suspect]
     Indication: HIV INFECTION
     Dates: start: 20071016
  2. REYATAZ [Suspect]
     Indication: HIV INFECTION
     Dates: start: 20110115
  3. TRUVADA [Suspect]
     Indication: HIV INFECTION
     Dates: start: 20110115
  4. SOLUPRED [Suspect]
     Indication: TRACHEITIS
     Route: 048
     Dates: start: 201105, end: 201105
  5. PEGASYS [Suspect]
     Indication: PRODUCT USED FOR UNKNOWN INDICATION
     Route: 058
     Dates: start: 20090627, end: 20120128
  6. LEXOMIL [Concomitant]
     Indication: PRODUCT USED FOR UNKNOWN INDICATION
     Dates: start: 20110115
  7. DOLIPRANE [Concomitant]
     Indication: PRODUCT USED FOR UNKNOWN INDICATION
     Dates: start: 20110115
  8. ZELITREX [Concomitant]
     Indication: PRODUCT USED FOR UNKNOWN INDICATION
     Dates: start: 20110115

REACTIONS (8)
  - Osteonecrosis [Not Recovered/Not Resolved]
  - Arthralgia [Unknown]
  - Abasia [Recovering/Resolving]
  - CD4 lymphocytes abnormal [Unknown]
  - Tracheitis [Unknown]
  - Muscular weakness [Unknown]
  - Gait disturbance [Recovering/Resolving]
  - Pain [Unknown]
